FAERS Safety Report 17230209 (Version 6)
Quarter: 2021Q1

REPORT INFORMATION
  Report Type: Report from Study
  Country: US (occurrence: US)
  Receive Date: 20200103
  Receipt Date: 20210323
  Transmission Date: 20210419
  Serious: Yes (Other)
  Sender: FDA-Public Use
  Company Number: NVSC2020US000600

PATIENT
  Age: 84 Year
  Sex: Male

DRUGS (2)
  1. ENTRESTO [Suspect]
     Active Substance: SACUBITRIL\VALSARTAN
     Indication: CARDIAC FAILURE CONGESTIVE
     Dosage: UNK, BID
     Route: 048
     Dates: start: 2019
  2. ENTRESTO [Suspect]
     Active Substance: SACUBITRIL\VALSARTAN
     Indication: CARDIAC FAILURE CHRONIC

REACTIONS (9)
  - Peripheral artery occlusion [Unknown]
  - Peripheral swelling [Unknown]
  - Ejection fraction decreased [Unknown]
  - Poor peripheral circulation [Unknown]
  - Weight decreased [Recovering/Resolving]
  - Cough [Unknown]
  - Confusional state [Unknown]
  - Dyspnoea [Unknown]
  - Gait disturbance [Unknown]

NARRATIVE: CASE EVENT DATE: 201912
